FAERS Safety Report 10431666 (Version 1)
Quarter: 2014Q3

REPORT INFORMATION
  Report Type: Spontaneous
  Country: FR (occurrence: None)
  Receive Date: 20140903
  Receipt Date: 20140903
  Transmission Date: 20150326
  Serious: Yes (Life-Threatening, Other)
  Sender: FDA-Public Use
  Company Number: FK201403401

PATIENT
  Age: 25 Year
  Sex: Female

DRUGS (1)
  1. ROPIVACAINE (MANUFACTURER UNKNOWN) (ROPIVACAINE) (ROPIVACAINE) [Suspect]
     Active Substance: ROPIVACAINE
     Indication: GENERAL ANAESTHESIA
     Route: 033

REACTIONS (7)
  - Cardiotoxicity [None]
  - Accidental overdose [None]
  - Toxicity to various agents [None]
  - Procedural pain [None]
  - Bradycardia [None]
  - Cardiac arrest [None]
  - Clonic convulsion [None]
